FAERS Safety Report 23481678 (Version 3)
Quarter: 2024Q1

REPORT INFORMATION
  Report Type: Report from Study
  Country: US (occurrence: US)
  Receive Date: 20240205
  Receipt Date: 20240321
  Transmission Date: 20240409
  Serious: Yes (Hospitalization, Other)
  Sender: FDA-Public Use
  Company Number: US-ABBVIE-5617544

PATIENT
  Age: 59 Year
  Sex: Female

DRUGS (3)
  1. RINVOQ [Suspect]
     Active Substance: UPADACITINIB
     Indication: Dermatitis atopic
     Dosage: FORM STRENGTH: 15 MILLIGRAM
     Route: 048
     Dates: start: 20230214, end: 202309
  2. RINVOQ [Suspect]
     Active Substance: UPADACITINIB
     Indication: Dermatitis atopic
     Dosage: FORM STRENGTH: 15 MILLIGRAM
     Route: 048
     Dates: start: 202402
  3. PREDNISONE [Concomitant]
     Active Substance: PREDNISONE
     Indication: Product used for unknown indication

REACTIONS (22)
  - Knee operation [Unknown]
  - Angina pectoris [Unknown]
  - Urticaria [Not Recovered/Not Resolved]
  - Hospitalisation [Unknown]
  - Skin disorder [Unknown]
  - Dermatitis atopic [Not Recovered/Not Resolved]
  - Pain [Not Recovered/Not Resolved]
  - Unevaluable event [Unknown]
  - Swelling [Unknown]
  - Hypersensitivity [Unknown]
  - Chest discomfort [Unknown]
  - Skin discolouration [Unknown]
  - Skin burning sensation [Not Recovered/Not Resolved]
  - Dyspnoea [Unknown]
  - Alopecia [Not Recovered/Not Resolved]
  - Off label use [Unknown]
  - Lung disorder [Unknown]
  - Unevaluable event [Unknown]
  - Drug withdrawal syndrome [Unknown]
  - Deafness [Unknown]
  - Aggression [Unknown]
  - Frustration tolerance decreased [Unknown]

NARRATIVE: CASE EVENT DATE: 20240101
